FAERS Safety Report 23853177 (Version 1)
Quarter: 2024Q2

REPORT INFORMATION
  Report Type: Spontaneous
  Country: ES (occurrence: ES)
  Receive Date: 20240514
  Receipt Date: 20240514
  Transmission Date: 20240715
  Serious: Yes (Other)
  Sender: FDA-Public Use
  Company Number: ES-CISBIO-2024000276

PATIENT
  Age: 4 Month
  Sex: Female

DRUGS (2)
  1. TECHNETIUM TC-99M ALBUMIN AGGREGATED [Suspect]
     Active Substance: TECHNETIUM TC-99M ALBUMIN AGGREGATED
     Indication: Gastric emptying study
     Route: 048
     Dates: start: 20240430, end: 20240430
  2. TECHNETIUM TC-99M SODIUM PERTECHNETATE [Suspect]
     Active Substance: TECHNETIUM TC-99M SODIUM PERTECHNETATE
     Indication: Gastric emptying study
     Route: 048
     Dates: start: 20240430, end: 20240430

REACTIONS (6)
  - Off label use [Recovered/Resolved]
  - Off label use [Recovered/Resolved]
  - Exposure to radiation [Recovered/Resolved]
  - Cough [Recovered/Resolved]
  - Vomiting [Recovered/Resolved]
  - Aspiration [Recovered/Resolved]

NARRATIVE: CASE EVENT DATE: 20240430
